FAERS Safety Report 8189316-3 (Version None)
Quarter: 2012Q1

REPORT INFORMATION
  Report Type: 
  Country: None (occurrence: None)
  Receive Date: 20120307
  Receipt Date: 20120229
  Transmission Date: 20120608
  Serious: No
  Sender: FDA-Public Use
  Company Number: PHHY2012JP013447

PATIENT
  Age: 79 Year
  Sex: Male

DRUGS (2)
  1. CARVEDILOL [Concomitant]
     Indication: HYPERTENSION
  2. TASIGNA [Suspect]
     Indication: CHRONIC MYELOID LEUKAEMIA
     Dosage: 600 MG, DAILY
     Route: 048
     Dates: start: 20120113

REACTIONS (1)
  - TACHYCARDIA [None]
